FAERS Safety Report 4575948-8 (Version None)
Quarter: 2005Q1

REPORT INFORMATION
  Report Type: 
  Country: None (occurrence: None)
  Receive Date: 20050204
  Receipt Date: 20050127
  Transmission Date: 20050727
  Serious: Yes (Disabling, Other)
  Sender: FDA-Public Use
  Company Number: 2004038815

PATIENT
  Age: 67 Year
  Sex: Female

DRUGS (4)
  1. TAHOR (ATORVASTATIN) [Suspect]
     Indication: HYPERCHOLESTEROLAEMIA
     Dosage: 10 MG
     Dates: start: 20040601, end: 20041201
  2. ACETYLSALICYLIC ACID SRT [Concomitant]
  3. ALENDRONIC ACID (ALENDRONIC ACID) [Concomitant]
  4. COLECALCIFEROL (COLECALCIFEROL) [Concomitant]

REACTIONS (6)
  - DIFFICULTY IN WALKING [None]
  - HAEMOLYSIS [None]
  - MYALGIA [None]
  - PERIARTICULAR DISORDER [None]
  - PRURITUS [None]
  - TENDON DISORDER [None]
